FAERS Safety Report 8349401-X (Version None)
Quarter: 2012Q2

REPORT INFORMATION
  Report Type: 
  Country: None (occurrence: None)
  Receive Date: 20120510
  Receipt Date: 20120427
  Transmission Date: 20120825
  Serious: Yes (Hospitalization)
  Sender: FDA-Public Use
  Company Number: FR-COVIDIEN/TYCO HEALTHCARE/MALLINCKRODT-T201201681

PATIENT
  Sex: Female

DRUGS (1)
  1. OPTIJECT [Suspect]
     Dosage: UNK
     Route: 042
     Dates: start: 20120425, end: 20120425

REACTIONS (4)
  - DYSPHONIA [None]
  - URTICARIA [None]
  - FACE OEDEMA [None]
  - DYSPHAGIA [None]
